FAERS Safety Report 10253491 (Version 2)
Quarter: 2016Q3

REPORT INFORMATION
  Report Type: Spontaneous
  Country: TR (occurrence: TR)
  Receive Date: 20140623
  Receipt Date: 20160729
  Transmission Date: 20161109
  Serious: Yes (Hospitalization)
  Sender: FDA-Public Use
  Company Number: TR-BRISTOL-MYERS SQUIBB COMPANY-21068515

PATIENT
  Age: 57 Year
  Sex: Female

DRUGS (1)
  1. METFORMIN HYDROCHLORIDE. [Suspect]
     Active Substance: METFORMIN HYDROCHLORIDE
     Indication: DIABETES MELLITUS
     Route: 065

REACTIONS (6)
  - Myalgia [Recovered/Resolved]
  - Arthropathy [Unknown]
  - Vitamin D decreased [Unknown]
  - Periarthritis [Unknown]
  - Exostosis [Unknown]
  - Carpal tunnel syndrome [Unknown]
